FAERS Safety Report 7694342-4 (Version None)
Quarter: 2011Q3

REPORT INFORMATION
  Report Type: 
  Country: None (occurrence: None)
  Receive Date: 20110819
  Receipt Date: 20110810
  Transmission Date: 20111222
  Serious: Yes (Other)
  Sender: FDA-Public Use
  Company Number: DK-JNJFOC-20110805671

PATIENT
  Sex: Female

DRUGS (4)
  1. REMICADE [Suspect]
     Indication: POLYARTHRITIS
     Dosage: 0, 2, 6, +8 WEEK
     Route: 042
     Dates: start: 20101223
  2. HYDROXYCHLOROQUINE [Concomitant]
     Indication: POLYARTHRITIS
     Route: 065
     Dates: start: 20091221
  3. METHOTREXATE SODIUM [Suspect]
     Indication: POLYARTHRITIS
     Route: 048
     Dates: start: 20080608
  4. PREDNISOLONE [Concomitant]
     Indication: POLYARTHRITIS
     Route: 065
     Dates: start: 20090323

REACTIONS (1)
  - OVARIAN CANCER [None]
